FAERS Safety Report 5916552-6 (Version None)
Quarter: 2008Q4

REPORT INFORMATION
  Report Type: 
  Country: None (occurrence: None)
  Receive Date: 20081013
  Receipt Date: 20081001
  Transmission Date: 20090506
  Serious: Yes (Other)
  Sender: FDA-Public Use
  Company Number: B0541060A

PATIENT
  Age: 43 Year
  Sex: Male

DRUGS (4)
  1. BUPROPION HCL [Suspect]
  2. LIDOCAINE [Concomitant]
  3. EPINEPHRINE [Concomitant]
  4. ANESTHESIA [Concomitant]

REACTIONS (21)
  - ABSCESS [None]
  - AGGRESSION [None]
  - AGITATION [None]
  - BLOOD CREATINE PHOSPHOKINASE INCREASED [None]
  - BLOOD CREATININE ABNORMAL [None]
  - CONFUSIONAL STATE [None]
  - DYSKINESIA [None]
  - FEELING COLD [None]
  - GASTROINTESTINAL SOUNDS ABNORMAL [None]
  - HYPERHIDROSIS [None]
  - IMMOBILE [None]
  - MUSCLE RIGIDITY [None]
  - MYDRIASIS [None]
  - MYOCLONUS [None]
  - RESTLESSNESS [None]
  - SEROTONIN SYNDROME [None]
  - SINUS TACHYCARDIA [None]
  - SINUSITIS [None]
  - SUPRAVENTRICULAR TACHYCARDIA [None]
  - SWELLING [None]
  - TACHYCARDIA [None]
